FAERS Safety Report 4316634-9 (Version None)
Quarter: 2004Q1

REPORT INFORMATION
  Report Type: 
  Country: None (occurrence: None)
  Receive Date: 20040312
  Receipt Date: 20040312
  Transmission Date: 20041129
  Serious: No
  Sender: FDA-Public Use
  Company Number: None

PATIENT
  Sex: Male

DRUGS (1)
  1. TOPROL-XL [Suspect]
     Dosage: TABLET, EXTENDED RELEASE

REACTIONS (1)
  - MEDICATION ERROR [None]
